FAERS Safety Report 8901869 (Version 1)
Quarter: 2012Q4

REPORT INFORMATION
  Report Type: Spontaneous
  Country: US (occurrence: None)
  Receive Date: 20121109
  Receipt Date: 20121109
  Transmission Date: 20130627
  Serious: Yes (Death)
  Sender: FDA-Public Use
  Company Number: None

PATIENT
  Age: 78 Year
  Sex: Female
  Weight: 35.2 kg

DRUGS (3)
  1. SPRYCEL [Suspect]
     Indication: CML
     Route: 048
     Dates: start: 20100312, end: 20121103
  2. MACRODANTIN [Concomitant]
  3. CIPRO [Concomitant]

REACTIONS (9)
  - Renal failure [None]
  - Urinary tract infection [None]
  - Hypophagia [None]
  - Pleural effusion [None]
  - Bacterial test positive [None]
  - Anaemia [None]
  - Therapeutic response decreased [None]
  - Blood potassium increased [None]
  - Gastrointestinal oedema [None]
